FAERS Safety Report 17444366 (Version 1)
Quarter: 2020Q1

REPORT INFORMATION
  Report Type: Spontaneous
  Country: US (occurrence: US)
  Receive Date: 20200221
  Receipt Date: 20200221
  Transmission Date: 20200409
  Serious: No
  Sender: FDA-Public Use
  Company Number: None

PATIENT
  Age: 52 Year
  Sex: Male
  Weight: 87.75 kg

DRUGS (1)
  1. ELIQUIS [Suspect]
     Active Substance: APIXABAN
     Indication: THROMBOSIS
     Dosage: ?          QUANTITY:60 TABLET(S);?
     Route: 048

REACTIONS (3)
  - Thrombosis [None]
  - Memory impairment [None]
  - Erectile dysfunction [None]

NARRATIVE: CASE EVENT DATE: 20200128
